FAERS Safety Report 10519293 (Version 5)
Quarter: 2015Q1

REPORT INFORMATION
  Report Type: Spontaneous
  Country: US (occurrence: US)
  Receive Date: 20141015
  Receipt Date: 20150126
  Transmission Date: 20150720
  Serious: Yes (Death, Other)
  Sender: FDA-Public Use
  Company Number: US-GLAXOSMITHKLINE-A1087701A

PATIENT
  Age: 79 Year
  Sex: Male
  Weight: 75.3 kg

DRUGS (8)
  1. VOTRIENT [Suspect]
     Active Substance: PAZOPANIB HYDROCHLORIDE
     Indication: LUNG NEOPLASM MALIGNANT
     Dosage: 200 MG, U
     Route: 065
     Dates: start: 20140912, end: 20140919
  2. NU-IRON [Concomitant]
  3. ASPIRIN. [Concomitant]
     Active Substance: ASPIRIN
  4. SYNTHROID [Concomitant]
     Active Substance: LEVOTHYROXINE SODIUM
  5. ULTRAM [Concomitant]
     Active Substance: TRAMADOL HYDROCHLORIDE
  6. CIPRO [Concomitant]
     Active Substance: CIPROFLOXACIN HYDROCHLORIDE
  7. FLONASE [Concomitant]
     Active Substance: FLUTICASONE PROPIONATE
  8. TYLENOL [Concomitant]
     Active Substance: ACETAMINOPHEN

REACTIONS (4)
  - Death [Fatal]
  - Hospice care [Unknown]
  - Malaise [Unknown]
  - Unable to afford prescribed medication [Unknown]

NARRATIVE: CASE EVENT DATE: 20140919
